FAERS Safety Report 4720932-4 (Version None)
Quarter: 2005Q3

REPORT INFORMATION
  Report Type: 
  Country: None (occurrence: None)
  Receive Date: 20050720
  Receipt Date: 20050707
  Transmission Date: 20060218
  Serious: Yes (Other)
  Sender: FDA-Public Use
  Company Number: 2005098914

PATIENT
  Age: 74 Year
  Sex: Male

DRUGS (4)
  1. TOLTERODINE TARTRATE [Suspect]
     Indication: POLLAKIURIA
     Dosage: 4 MG (4 MG, 1 IN 1 D), ORAL
     Route: 048
     Dates: start: 20050617, end: 20050618
  2. CAPTOPRIL [Concomitant]
  3. SIMVASTATIN [Concomitant]
  4. ASPIRIN [Concomitant]

REACTIONS (1)
  - LOSS OF CONSCIOUSNESS [None]
